FAERS Safety Report 23993540 (Version 1)
Quarter: 2024Q2

REPORT INFORMATION
  Report Type: Spontaneous
  Country: GB (occurrence: None)
  Receive Date: 20240620
  Receipt Date: 20240620
  Transmission Date: 20240716
  Serious: Yes (Other)
  Sender: FDA-Public Use
  Company Number: 2024A136707

PATIENT
  Age: 83 Year
  Sex: Male
  Weight: 71 kg

DRUGS (6)
  1. DAPAGLIFLOZIN [Suspect]
     Active Substance: DAPAGLIFLOZIN
     Indication: Heart failure with reduced ejection fraction
     Dosage: 10MG OD
     Dates: start: 20240603, end: 20240611
  2. BISOPROLOL [Concomitant]
     Active Substance: BISOPROLOL\BISOPROLOL FUMARATE
     Indication: Heart failure with reduced ejection fraction
  3. SACUBITRIL AND SACUBITRIL/VALSARTAN AND VALSARTAN [Concomitant]
     Indication: Heart failure with reduced ejection fraction
  4. WARFARIN [Concomitant]
     Active Substance: WARFARIN
  5. SIMVASTATIN [Concomitant]
     Active Substance: SIMVASTATIN
  6. FUROSEMIDE [Concomitant]
     Active Substance: FUROSEMIDE

REACTIONS (1)
  - Haemoptysis [Recovering/Resolving]

NARRATIVE: CASE EVENT DATE: 20240606
